FAERS Safety Report 17952431 (Version 3)
Quarter: 2020Q3

REPORT INFORMATION
  Report Type: Report from Study
  Country: ES (occurrence: ES)
  Receive Date: 20200626
  Receipt Date: 20200922
  Transmission Date: 20201103
  Serious: Yes (Hospitalization)
  Sender: FDA-Public Use
  Company Number: ES-EXELIXIS-XL18420030737

PATIENT
  Age: 51 Year
  Sex: Female
  Weight: 105 kg

DRUGS (3)
  1. XL184 [Suspect]
     Active Substance: CABOZANTINIB
     Indication: THYROID CANCER
     Dosage: 60 MG, QD
     Route: 048
     Dates: start: 20190717, end: 20200609
  2. XL184 [Suspect]
     Active Substance: CABOZANTINIB
     Dosage: 40 MG
     Route: 048
     Dates: start: 20200806
  3. LEVOTIROXINA [Concomitant]
     Active Substance: LEVOTHYROXINE

REACTIONS (1)
  - Anal abscess [Recovered/Resolved]

NARRATIVE: CASE EVENT DATE: 20200617
